FAERS Safety Report 7967558-7 (Version None)
Quarter: 2011Q4

REPORT INFORMATION
  Report Type: 
  Country: None (occurrence: None)
  Receive Date: 20111209
  Receipt Date: 20111129
  Transmission Date: 20120403
  Serious: Yes (Hospitalization)
  Sender: FDA-Public Use
  Company Number: US-JNJFOC-20040206449

PATIENT
  Sex: Male
  Weight: 87.09 kg

DRUGS (5)
  1. REMICADE [Suspect]
     Route: 042
     Dates: start: 20031121
  2. PREDNISONE TAB [Concomitant]
  3. REMICADE [Suspect]
     Route: 042
     Dates: start: 20040518
  4. REMICADE [Suspect]
     Route: 042
     Dates: start: 20040617
  5. REMICADE [Suspect]
     Indication: RHEUMATOID ARTHRITIS
     Route: 042
     Dates: start: 20030812

REACTIONS (1)
  - PNEUMONIA LEGIONELLA [None]
